FAERS Safety Report 10015447 (Version 1)
Quarter: 2014Q1

REPORT INFORMATION
  Report Type: Spontaneous
  Country: US (occurrence: US)
  Receive Date: 20140317
  Receipt Date: 20140317
  Transmission Date: 20141002
  Serious: No
  Sender: FDA-Public Use
  Company Number: US-BAXTER-2014BAX011581

PATIENT
  Sex: Female
  Weight: 100 kg

DRUGS (3)
  1. DIANEAL LOW CALCIUM [Suspect]
     Indication: PERITONEAL DIALYSIS
     Route: 033
     Dates: start: 20140304, end: 20140304
  2. DIANEAL LOW CALCIUM [Suspect]
     Route: 033
     Dates: start: 20140304, end: 20140304
  3. DIANEAL LOW CALCIUM [Suspect]
     Indication: PERITONEAL DIALYSIS
     Route: 033
     Dates: start: 20140206

REACTIONS (3)
  - Wrong drug administered [Recovered/Resolved]
  - Dyspnoea [Recovered/Resolved]
  - Abdominal distension [Recovered/Resolved]
